FAERS Safety Report 7984741-5 (Version None)
Quarter: 2011Q4

REPORT INFORMATION
  Report Type: 
  Country: None (occurrence: None)
  Receive Date: 20111216
  Receipt Date: 20111205
  Transmission Date: 20120403
  Serious: Yes (Hospitalization, Other)
  Sender: FDA-Public Use
  Company Number: JP-SANOFI-AVENTIS-2011SA081336

PATIENT
  Age: 64 Year
  Sex: Male
  Weight: 58 kg

DRUGS (6)
  1. ASPIRIN [Concomitant]
     Route: 048
     Dates: start: 20100712
  2. LANSOPRAZOLE [Concomitant]
     Route: 048
     Dates: start: 20100712
  3. METHYCOBAL [Concomitant]
     Route: 048
  4. CLOPIDOGREL BISULFATE [Suspect]
     Dosage: LOADING DOSE
     Route: 065
     Dates: start: 20100712, end: 20100712
  5. CEFAZOLIN SODIUM [Concomitant]
     Route: 048
  6. CLOPIDOGREL BISULFATE [Suspect]
     Dosage: 1ST DAY 2ND MONTH
     Route: 065
     Dates: start: 20100713

REACTIONS (1)
  - BLOOD DISORDER [None]
